FAERS Safety Report 25396074 (Version 6)
Quarter: 2025Q4

REPORT INFORMATION
  Report Type: Report from Study
  Country: AR (occurrence: AR)
  Receive Date: 20250604
  Receipt Date: 20251018
  Transmission Date: 20260118
  Serious: Yes (Life-Threatening, Hospitalization, Other)
  Sender: AMGEN
  Company Number: AR-AMGEN-ARGSL2025105542

PATIENT
  Age: 37 Year
  Sex: Female

DRUGS (2)
  1. BLINCYTO [Suspect]
     Active Substance: BLINATUMOMAB
     Indication: B precursor type acute leukaemia
     Dosage: UNK (28 DAYS)
     Route: 065
     Dates: start: 20250521, end: 20250703
  2. BLINCYTO [Suspect]
     Active Substance: BLINATUMOMAB
     Dosage: UNK, SECOND CYCLE
     Route: 065
     Dates: start: 20250908, end: 20250915

REACTIONS (10)
  - Pneumonia [Not Recovered/Not Resolved]
  - Urinary tract infection [Unknown]
  - Drug-induced liver injury [Unknown]
  - Lung disorder [Unknown]
  - General physical health deterioration [Unknown]
  - Mouth ulceration [Unknown]
  - Pain [Unknown]
  - Headache [Unknown]
  - Blood pressure abnormal [Unknown]
  - Gastrointestinal disorder [Not Recovered/Not Resolved]

NARRATIVE: CASE EVENT DATE: 20250501
